FAERS Safety Report 7595803-9 (Version None)
Quarter: 2011Q3

REPORT INFORMATION
  Report Type: 
  Country: None (occurrence: None)
  Receive Date: 20110707
  Receipt Date: 20110624
  Transmission Date: 20111222
  Serious: Yes (Other)
  Sender: FDA-Public Use
  Company Number: US-JNJFOC-20110611562

PATIENT
  Sex: Male
  Weight: 88.45 kg

DRUGS (5)
  1. REMICADE [Suspect]
     Indication: CROHN'S DISEASE
     Route: 042
     Dates: start: 20110425
  2. BENTYL [Concomitant]
     Indication: CROHN'S DISEASE
     Dosage: EVERY 6 HOURS AS NEEDED
     Route: 048
  3. INDERAL [Concomitant]
     Indication: VARICES OESOPHAGEAL
     Route: 048
  4. CIPROFLOXACIN HCL [Concomitant]
     Indication: CROHN'S DISEASE
     Route: 048
  5. REMICADE [Suspect]
     Route: 042
     Dates: start: 20110523, end: 20110523

REACTIONS (2)
  - HYPOAESTHESIA ORAL [None]
  - URTICARIA [None]
